FAERS Safety Report 9657276 (Version 1)
Quarter: 2013Q4

REPORT INFORMATION
  Report Type: Spontaneous
  Country: US (occurrence: US)
  Receive Date: 20131030
  Receipt Date: 20131030
  Transmission Date: 20140711
  Serious: No
  Sender: FDA-Public Use
  Company Number: US-PFIZER INC-2013307355

PATIENT
  Age: 59 Year
  Sex: Female
  Weight: 125 kg

DRUGS (6)
  1. DIFLUCAN [Suspect]
     Dosage: UNK
  2. DIFLUCAN [Interacting]
     Dosage: 200 MG, 1X/DAY
     Dates: start: 20131022
  3. ZYVOX [Interacting]
     Indication: UPPER RESPIRATORY TRACT INFECTION
     Dosage: 600 MG, 2X/DAY
     Dates: start: 20131015, end: 20131021
  4. ZYVOX [Interacting]
     Indication: DYSPNOEA
  5. ZYVOX [Interacting]
     Indication: MALAISE
  6. BENADRYL [Interacting]
     Indication: HYPERSENSITIVITY
     Dosage: 100 MG, 2X/DAY
     Dates: start: 20131015

REACTIONS (5)
  - Drug interaction [Unknown]
  - Hypersensitivity [Unknown]
  - Erythema [Unknown]
  - Pharyngeal erythema [Unknown]
  - Hypersensitivity [Unknown]
